FAERS Safety Report 7220610-6 (Version None)
Quarter: 2011Q1

REPORT INFORMATION
  Report Type: 
  Country: None (occurrence: None)
  Receive Date: 20110111
  Receipt Date: 20110104
  Transmission Date: 20110831
  Serious: Yes (Congenital Anomaly)
  Sender: FDA-Public Use
  Company Number: FR-PFIZER INC-2011001151

PATIENT
  Age: 31 Year
  Sex: Female

DRUGS (4)
  1. IMOVANE [Suspect]
     Indication: DEPRESSION
     Dosage: 1 DF, 1X/DAY
     Route: 048
  2. NOZINAN [Suspect]
     Indication: DEPRESSION
     Dosage: 100 MG, 1X/DAY
     Route: 048
  3. XANAX [Suspect]
     Indication: DEPRESSION
     Dosage: 0.5 MG, 1X/DAY
     Route: 048
  4. TRIMEPRAZINE TARTRATE [Suspect]
     Indication: DEPRESSION
     Dosage: 30 GTT, 1X/DAY
     Route: 048

REACTIONS (2)
  - ABORTION INDUCED [None]
  - DRUG EXPOSURE DURING PREGNANCY [None]
